FAERS Safety Report 7571205-6 (Version None)
Quarter: 2011Q2

REPORT INFORMATION
  Report Type: 
  Country: None (occurrence: None)
  Receive Date: 20110624
  Receipt Date: 20100325
  Transmission Date: 20111010
  Serious: Yes (Hospitalization)
  Sender: FDA-Public Use
  Company Number: A0851870A

PATIENT
  Sex: Female

DRUGS (3)
  1. XELODA [Suspect]
     Route: 065
  2. RADIATION [Concomitant]
  3. TYKERB [Suspect]
     Dosage: 1250MG PER DAY
     Route: 048
     Dates: start: 20100324

REACTIONS (6)
  - DIZZINESS [None]
  - FATIGUE [None]
  - PALLIATIVE CARE [None]
  - VOMITING [None]
  - RASH PRURITIC [None]
  - NAUSEA [None]
